FAERS Safety Report 8785912 (Version 2)
Quarter: 2015Q2

REPORT INFORMATION
  Report Type: Report from Study
  Country: US (occurrence: US)
  Receive Date: 20120914
  Receipt Date: 20150623
  Transmission Date: 20150821
  Serious: Yes (Death)
  Sender: FDA-Public Use
  Company Number: US-ROCHE-1128112

PATIENT
  Age: 76 Year
  Sex: Female

DRUGS (6)
  1. BENADRYL [Concomitant]
     Active Substance: DIPHENHYDRAMINE HYDROCHLORIDE
     Route: 042
  2. AVASTIN [Suspect]
     Active Substance: BEVACIZUMAB
     Indication: MALIGNANT URINARY TRACT NEOPLASM
  3. SUNITINIB [Concomitant]
     Active Substance: SUNITINIB
  4. AVASTIN [Suspect]
     Active Substance: BEVACIZUMAB
     Indication: RENAL CANCER
     Route: 042
     Dates: start: 20060220
  5. TYLENOL [Concomitant]
     Active Substance: ACETAMINOPHEN
     Route: 048
  6. AMBIEN [Concomitant]
     Active Substance: ZOLPIDEM TARTRATE

REACTIONS (13)
  - Decreased appetite [Unknown]
  - Feeling cold [Unknown]
  - Weight decreased [Unknown]
  - Restless legs syndrome [Unknown]
  - Pain in extremity [Unknown]
  - Incontinence [Unknown]
  - Constipation [Unknown]
  - Asthenia [Unknown]
  - Death [Fatal]
  - Nasal congestion [Unknown]
  - Pain [Unknown]
  - Off label use [Unknown]
  - Dementia Alzheimer^s type [Unknown]

NARRATIVE: CASE EVENT DATE: 20060606
